FAERS Safety Report 6185330-8 (Version None)
Quarter: 2009Q2

REPORT INFORMATION
  Report Type: 
  Country: None (occurrence: None)
  Receive Date: 20090511
  Receipt Date: 20090505
  Transmission Date: 20091009
  Serious: Yes (Other)
  Sender: FDA-Public Use
  Company Number: US-ASTRAZENECA-2008UW10283

PATIENT
  Age: 13535 Day
  Sex: Female

DRUGS (16)
  1. SYMBICORT [Suspect]
     Indication: ASTHMA
     Dosage: 160/4.5 UG, 2 PUFFS
     Route: 055
     Dates: start: 20080409, end: 20080701
  2. SYMBICORT [Suspect]
     Dosage: 160/4.5 UG 2 PUFFS
     Route: 055
     Dates: start: 20080801
  3. SYMBICORT [Suspect]
     Dosage: 88 UG, TWO PUFFS
     Route: 055
  4. SYMBICORT [Suspect]
     Dosage: 160/4.5 2 PUFFS TWICE A DAY
     Route: 055
  5. INTAL [Concomitant]
  6. SINGULAIR [Concomitant]
  7. ALLEGRA [Concomitant]
  8. CRESTOR [Concomitant]
     Route: 048
  9. CARDIZEM LA [Concomitant]
     Dosage: 360 MG
  10. COREG [Concomitant]
     Dosage: 80 MG
     Dates: start: 20080701
  11. VERAMYST [Concomitant]
  12. ASMANEX TWISTHALER [Concomitant]
  13. PREDNISONE [Concomitant]
     Indication: ASTHMA
  14. XOPENEX [Concomitant]
     Indication: ASTHMA
  15. CLARINEX [Concomitant]
     Indication: MULTIPLE ALLERGIES
  16. DIOVAN [Concomitant]
     Indication: HYPERTENSION

REACTIONS (7)
  - ASTHMA [None]
  - COUGH [None]
  - DYSPNOEA [None]
  - HYSTERECTOMY [None]
  - NASOPHARYNGITIS [None]
  - OEDEMA PERIPHERAL [None]
  - PULMONARY CONGESTION [None]
